FAERS Safety Report 10679103 (Version 1)
Quarter: 2014Q4

REPORT INFORMATION
  Report Type: Report from Study
  Country: US (occurrence: US)
  Receive Date: 20141229
  Receipt Date: 20141229
  Transmission Date: 20150529
  Serious: Yes (Other)
  Sender: FDA-Public Use
  Company Number: US-SA-2014SA179038

PATIENT
  Sex: Female

DRUGS (9)
  1. FLUDARABINE PHOSPHATE. [Suspect]
     Active Substance: FLUDARABINE PHOSPHATE
     Indication: MYELOID LEUKAEMIA
     Route: 042
  2. CARBOPLATIN. [Suspect]
     Active Substance: CARBOPLATIN
     Indication: MYELOID LEUKAEMIA
     Dosage: BY CONTINOUS INFUSION OVER 120 HOUR TO ACHIEVE A TOTAL AREA UNDER CURVE (AUC) OF 12.
     Route: 041
  3. THALIDOMIDE [Suspect]
     Active Substance: THALIDOMIDE
     Indication: MYELOID LEUKAEMIA
     Route: 048
  4. CARBOPLATIN. [Suspect]
     Active Substance: CARBOPLATIN
     Indication: MYELOID LEUKAEMIA
     Route: 041
  5. TOPOTECAN [Suspect]
     Active Substance: TOPOTECAN\TOPOTECAN HYDROCHLORIDE
     Indication: MYELOID LEUKAEMIA
     Dosage: CONTINOUS INFUSION OVER  72 HOUR
     Route: 041
  6. THALIDOMIDE [Suspect]
     Active Substance: THALIDOMIDE
     Indication: MYELOID LEUKAEMIA
     Dosage: STARTED AT A DOSE OF 100 MG/DAY ORALLY FOR 1 WEEK AND 200 MG/DAY.
     Route: 048
  7. FLUDARABINE PHOSPHATE. [Suspect]
     Active Substance: FLUDARABINE PHOSPHATE
     Indication: MYELOID LEUKAEMIA
     Route: 042
  8. PYRIDOXINE [Concomitant]
     Active Substance: PYRIDOXINE
     Indication: PROPHYLAXIS
  9. TOPOTECAN [Suspect]
     Active Substance: TOPOTECAN\TOPOTECAN HYDROCHLORIDE
     Indication: MYELOID LEUKAEMIA
     Route: 041

REACTIONS (3)
  - Infection [Unknown]
  - Peripheral artery thrombosis [Unknown]
  - Bone marrow failure [Unknown]
